FAERS Safety Report 15381726 (Version 6)
Quarter: 2019Q2

REPORT INFORMATION
  Report Type: Report from Study
  Country: US (occurrence: US)
  Receive Date: 20180913
  Receipt Date: 20190403
  Transmission Date: 20190711
  Serious: Yes (Hospitalization, Other)
  Sender: FDA-Public Use
  Company Number: US-MALLINCKRODT-T201803556

PATIENT
  Sex: Male

DRUGS (2)
  1. REPOSITORY CORTICOTROPIN INJECTION [Suspect]
     Active Substance: CORTICOTROPIN
     Indication: PROTEINURIA
     Dosage: 80 UNITS/1 ML, 2 TIMES PER WEEK (MONDAY AND FRIDAY)
     Route: 030
     Dates: start: 20180612, end: 201807
  2. REPOSITORY CORTICOTROPIN INJECTION [Suspect]
     Active Substance: CORTICOTROPIN
     Indication: NEPHROTIC SYNDROME
     Dosage: 80 UNITS/1 ML, 2 TIMES PER WEEK (MONDAY AND FRIDAY)
     Route: 030
     Dates: start: 2018, end: 2019

REACTIONS (5)
  - Intracranial mass [Not Recovered/Not Resolved]
  - Dehydration [Recovering/Resolving]
  - Pneumonia [Unknown]
  - Renal failure [Not Recovered/Not Resolved]
  - Diabetes mellitus [Not Recovered/Not Resolved]

NARRATIVE: CASE EVENT DATE: 2018
